FAERS Safety Report 6857720-9 (Version None)
Quarter: 2010Q3

REPORT INFORMATION
  Report Type: 
  Country: None (occurrence: None)
  Receive Date: 20100719
  Receipt Date: 20080121
  Transmission Date: 20110219
  Serious: No
  Sender: FDA-Public Use
  Company Number: US-PFIZER INC-2008009563

PATIENT
  Sex: Female
  Weight: 72.6 kg

DRUGS (6)
  1. CHANTIX [Suspect]
     Indication: CEREBROVASCULAR ACCIDENT
     Dates: start: 20080121
  2. ALL OTHER THERAPEUTIC PRODUCTS [Suspect]
  3. SYNTHROID [Concomitant]
     Indication: THYROID DISORDER
  4. LIPITOR [Concomitant]
     Indication: CEREBROVASCULAR ACCIDENT
  5. AGGRENOX [Concomitant]
     Indication: CEREBROVASCULAR ACCIDENT
     Dosage: 25MG/200MG
  6. OXYCONTIN [Concomitant]
     Indication: BACK PAIN

REACTIONS (1)
  - HOT FLUSH [None]
